FAERS Safety Report 9271503 (Version 2)
Quarter: 2013Q2

REPORT INFORMATION
  Report Type: Spontaneous
  Country: JP (occurrence: JP)
  Receive Date: 20130506
  Receipt Date: 20130528
  Transmission Date: 20140414
  Serious: Yes (Hospitalization)
  Sender: FDA-Public Use
  Company Number: JP-JNJFOC-20130415793

PATIENT
  Age: 74 Year
  Sex: Male
  Weight: 27.22 kg

DRUGS (7)
  1. XARELTO [Suspect]
     Indication: ATRIAL FIBRILLATION
     Route: 048
     Dates: start: 20130420, end: 20130429
  2. XARELTO [Suspect]
     Indication: ATRIAL FIBRILLATION
     Route: 048
     Dates: start: 20130417, end: 20130419
  3. XARELTO [Suspect]
     Indication: CEREBROVASCULAR ACCIDENT PROPHYLAXIS
     Route: 048
     Dates: start: 20130417, end: 20130419
  4. XARELTO [Suspect]
     Indication: CEREBROVASCULAR ACCIDENT PROPHYLAXIS
     Route: 048
     Dates: start: 20130420, end: 20130429
  5. MUCOSOLVAN [Concomitant]
     Indication: PNEUMONIA
     Route: 048
     Dates: start: 20130418, end: 20130430
  6. CRAVIT [Concomitant]
     Indication: PNEUMONIA
     Route: 048
     Dates: start: 20130423
  7. MEROPENEM [Concomitant]
     Indication: PRODUCT USED FOR UNKNOWN INDICATION
     Route: 050
     Dates: start: 20130423

REACTIONS (2)
  - Oedema peripheral [Recovering/Resolving]
  - Pleural effusion [Recovering/Resolving]
